FAERS Safety Report 23068525 (Version 1)
Quarter: 2023Q4

REPORT INFORMATION
  Report Type: Spontaneous
  Country: US (occurrence: None)
  Receive Date: 20231014
  Receipt Date: 20231014
  Transmission Date: 20240110
  Serious: Yes (Disabling)
  Sender: FDA-Public Use
  Company Number: None

PATIENT
  Age: 63 Year
  Sex: 0

DRUGS (1)
  1. KLONOPIN [Suspect]
     Active Substance: CLONAZEPAM
     Indication: Panic attack
     Dosage: OTHER QUANTITY : 1 TABLET(S);?FREQUENCY : AT BEDTIME;?
     Route: 048
     Dates: start: 19900601, end: 20210708

REACTIONS (6)
  - Impaired work ability [None]
  - Impaired driving ability [None]
  - Drug dependence [None]
  - Sensory disturbance [None]
  - Nervous system disorder [None]
  - Motion sickness [None]

NARRATIVE: CASE EVENT DATE: 20210601
